FAERS Safety Report 5871338-6 (Version None)
Quarter: 2008Q3

REPORT INFORMATION
  Report Type: 
  Country: None (occurrence: None)
  Receive Date: 20080904
  Receipt Date: 20080904
  Transmission Date: 20090109
  Serious: Yes (Disabling)
  Sender: FDA-Public Use
  Company Number: None

PATIENT
  Age: 56 Year
  Sex: Female
  Weight: 43.5453 kg

DRUGS (1)
  1. KENALOG-40 [Suspect]
     Indication: BACK PAIN
     Dosage: 40 1 LEFT BUTTOCK
     Dates: start: 20070731

REACTIONS (6)
  - IMMEDIATE POST-INJECTION REACTION [None]
  - INJECTION SITE DISCOLOURATION [None]
  - INJECTION SITE PAIN [None]
  - INJECTION SITE RASH [None]
  - INJECTION SITE REACTION [None]
  - SKIN INJURY [None]
